FAERS Safety Report 18270962 (Version 1)
Quarter: 2020Q3

REPORT INFORMATION
  Report Type: Spontaneous
  Country: US (occurrence: US)
  Receive Date: 20200915
  Receipt Date: 20200915
  Transmission Date: 20201103
  Serious: Yes (Death, Hospitalization, Other)
  Sender: FDA-Public Use
  Company Number: US-PURDUE-USA-2020-0166207

PATIENT
  Age: 39 Year
  Sex: Male
  Weight: 93.42 kg

DRUGS (4)
  1. OXYCONTIN [Suspect]
     Active Substance: OXYCODONE HYDROCHLORIDE
     Indication: PRODUCT USED FOR UNKNOWN INDICATION
     Route: 048
  2. MARIJUANA [Suspect]
     Active Substance: CANNABIS SATIVA SUBSP. INDICA TOP
     Indication: PRODUCT USED FOR UNKNOWN INDICATION
     Route: 065
  3. VICODIN [Suspect]
     Active Substance: ACETAMINOPHEN\HYDROCODONE BITARTRATE
     Indication: PRODUCT USED FOR UNKNOWN INDICATION
     Route: 065
  4. OXYCODONE HYDROCHLORIDE (SIMILAR TO NDA 22?272) [Suspect]
     Active Substance: OXYCODONE HYDROCHLORIDE
     Indication: PRODUCT USED FOR UNKNOWN INDICATION
     Route: 048

REACTIONS (23)
  - Ventricular fibrillation [Unknown]
  - Pulmonary congestion [Unknown]
  - Unresponsive to stimuli [Unknown]
  - Cardiomegaly [Unknown]
  - Left ventricular hypertrophy [Unknown]
  - Arteriosclerosis coronary artery [Unknown]
  - Vomiting [Unknown]
  - Overdose [Unknown]
  - Toxicity to various agents [Fatal]
  - Pulmonary oedema [Unknown]
  - Livedo reticularis [Unknown]
  - Drug dependence [Unknown]
  - Drug abuse [Unknown]
  - Tibia fracture [Unknown]
  - Cardiac arrest [Unknown]
  - Cerebral ischaemia [Unknown]
  - Congestive hepatopathy [Unknown]
  - Scar [Unknown]
  - Depression [Unknown]
  - Hypoxic-ischaemic encephalopathy [Unknown]
  - Hepatic necrosis [Unknown]
  - Loss of consciousness [Unknown]
  - Headache [Unknown]

NARRATIVE: CASE EVENT DATE: 200208
